FAERS Safety Report 7769038-0 (Version None)
Quarter: 2011Q3

REPORT INFORMATION
  Report Type: 
  Country: None (occurrence: None)
  Receive Date: 20110922
  Receipt Date: 20101217
  Transmission Date: 20111222
  Serious: No
  Sender: FDA-Public Use
  Company Number: US-ASTRAZENECA-2010SE59905

PATIENT
  Age: 19321 Day
  Sex: Male
  Weight: 77.1 kg

DRUGS (2)
  1. CELEXA [Concomitant]
     Indication: DEPRESSION
     Route: 048
     Dates: start: 20080101
  2. SEROQUEL XR [Suspect]
     Indication: BIPOLAR DISORDER
     Route: 048
     Dates: start: 20080101, end: 20101210

REACTIONS (7)
  - ANXIETY [None]
  - DEPRESSION [None]
  - DECREASED APPETITE [None]
  - TREMOR [None]
  - DRUG DOSE OMISSION [None]
  - INSOMNIA [None]
  - AGGRESSION [None]
